FAERS Safety Report 14220906 (Version 1)
Quarter: 2017Q4

REPORT INFORMATION
  Report Type: Spontaneous
  Country: US (occurrence: US)
  Receive Date: 20171124
  Receipt Date: 20171124
  Transmission Date: 20180321
  Serious: Yes (Death)
  Sender: FDA-Public Use
  Company Number: US-ASTRAZENECA-2017SF18923

PATIENT
  Age: 57 Year
  Sex: Male

DRUGS (2)
  1. BRILINTA [Suspect]
     Active Substance: TICAGRELOR
     Indication: VASCULAR STENT STENOSIS
     Dosage: 180.0MG ONCE/SINGLE ADMINISTRATION
     Route: 048
     Dates: start: 20171115
  2. BRILINTA [Suspect]
     Active Substance: TICAGRELOR
     Indication: ACUTE MYOCARDIAL INFARCTION
     Dosage: 180.0MG ONCE/SINGLE ADMINISTRATION
     Route: 048
     Dates: start: 20171115

REACTIONS (8)
  - Vomiting [Fatal]
  - Pulse absent [Fatal]
  - Coagulation time abnormal [Fatal]
  - Coronary artery thrombosis [Fatal]
  - Electrocardiogram ST segment elevation [Fatal]
  - Arterial disorder [Fatal]
  - Pain [Fatal]
  - Malaise [Fatal]

NARRATIVE: CASE EVENT DATE: 20171115
